FAERS Safety Report 19785664 (Version 1)
Quarter: 2021Q3

REPORT INFORMATION
  Report Type: Spontaneous
  Country: JP (occurrence: JP)
  Receive Date: 20210903
  Receipt Date: 20210903
  Transmission Date: 20211014
  Serious: Yes (Other)
  Sender: FDA-Public Use
  Company Number: JP-ASTRAZENECA-2021A703320

PATIENT
  Age: 76 Year
  Sex: Female

DRUGS (7)
  1. LYNPARZA [Suspect]
     Active Substance: OLAPARIB
     Indication: OVARIAN CANCER RECURRENT
     Dosage: 600.0MG UNKNOWN
     Route: 048
     Dates: start: 20191214, end: 20191228
  2. LYNPARZA [Suspect]
     Active Substance: OLAPARIB
     Indication: OVARIAN CANCER RECURRENT
     Route: 048
     Dates: start: 20200208, end: 20200222
  3. LYNPARZA [Suspect]
     Active Substance: OLAPARIB
     Indication: OVARIAN CANCER RECURRENT
     Dosage: 400.0MG UNKNOWN
     Route: 048
     Dates: start: 20210808
  4. LYNPARZA [Suspect]
     Active Substance: OLAPARIB
     Indication: OVARIAN CANCER RECURRENT
     Dosage: 400.0MG UNKNOWN
     Route: 048
     Dates: start: 20200308, end: 20200518
  5. LYNPARZA [Suspect]
     Active Substance: OLAPARIB
     Indication: OVARIAN CANCER RECURRENT
     Dosage: DOSE UNKNOWN
     Route: 048
     Dates: start: 20181102, end: 20191130
  6. LYNPARZA [Suspect]
     Active Substance: OLAPARIB
     Indication: OVARIAN CANCER RECURRENT
     Dosage: 400.0MG UNKNOWN
     Route: 048
     Dates: start: 20200908, end: 20210716
  7. LYNPARZA [Suspect]
     Active Substance: OLAPARIB
     Indication: OVARIAN CANCER RECURRENT
     Dosage: 600.0MG UNKNOWN
     Route: 048
     Dates: start: 20200111, end: 20200125

REACTIONS (3)
  - Neutrophil count decreased [Unknown]
  - Interstitial lung disease [Unknown]
  - Anaemia [Recovered/Resolved]

NARRATIVE: CASE EVENT DATE: 20181130
